FAERS Safety Report 21232682 (Version 1)
Quarter: 2022Q3

REPORT INFORMATION
  Report Type: Spontaneous
  Country: US (occurrence: US)
  Receive Date: 20220819
  Receipt Date: 20220819
  Transmission Date: 20221027
  Serious: No
  Sender: FDA-Public Use
  Company Number: US-BAUSCH-BL-2022-020037

PATIENT
  Sex: Female
  Weight: 56.750 kg

DRUGS (1)
  1. LACRISERT [Suspect]
     Active Substance: HYDROXYPROPYL CELLULOSE
     Indication: Dry eye
     Route: 047

REACTIONS (4)
  - Application site pain [Unknown]
  - Skin ulcer [Unknown]
  - Wrong technique in product usage process [Unknown]
  - Product availability issue [Unknown]
